FAERS Safety Report 9743039 (Version 2)
Quarter: 2013Q4

REPORT INFORMATION
  Report Type: Report from Study
  Country: JP (occurrence: JP)
  Receive Date: 20131210
  Receipt Date: 20131210
  Transmission Date: 20140711
  Serious: Yes (Death, Hospitalization, Other)
  Sender: FDA-Public Use
  Company Number: JP-SA-THYM-1004050

PATIENT
  Age: 15 Year
  Sex: Female
  Weight: 41 kg

DRUGS (13)
  1. THYMOGLOBULIN [Suspect]
     Indication: BONE MARROW CONDITIONING REGIMEN
     Dosage: 100 MG, QD
     Route: 065
     Dates: start: 20121006, end: 20121009
  2. FLUDARA [Suspect]
     Indication: APLASTIC ANAEMIA
     Dosage: UNK
     Route: 065
     Dates: start: 20121006, end: 20121009
  3. DEXART [Suspect]
     Indication: PROPHYLAXIS
     Dosage: UNK
     Route: 065
     Dates: start: 20121006, end: 20121009
  4. PRIDOL [Suspect]
     Indication: PROPHYLAXIS
     Dosage: UNK
     Route: 065
     Dates: start: 20121006, end: 20121009
  5. ENDOXAN [Suspect]
     Indication: APLASTIC ANAEMIA
     Dosage: UNK
     Route: 065
     Dates: start: 20121006, end: 20121009
  6. FUNGUARD [Concomitant]
     Indication: SYSTEMIC MYCOSIS
     Dosage: UNK
     Route: 065
     Dates: start: 20120929, end: 20121129
  7. ACICLOVIR [Concomitant]
     Indication: ANTIVIRAL PROPHYLAXIS
     Dosage: UNK
     Route: 065
     Dates: start: 20121004, end: 20121210
  8. FRAGMIN [Concomitant]
     Indication: PROPHYLAXIS
     Dosage: UNK
     Route: 065
     Dates: start: 20121005, end: 20121210
  9. UROMITEXAN [Concomitant]
     Indication: PROPHYLAXIS
     Dosage: UNK
     Route: 065
     Dates: start: 20121006, end: 20121009
  10. ONDANSETRON [Concomitant]
     Indication: PROPHYLAXIS OF NAUSEA AND VOMITING
     Dosage: UNK
     Route: 065
     Dates: start: 20121006, end: 20121018
  11. PROGRAF [Concomitant]
     Indication: PROPHYLAXIS AGAINST GRAFT VERSUS HOST DISEASE
     Dosage: UNK
     Route: 065
     Dates: start: 20121010, end: 20121210
  12. METHOTREXATE [Concomitant]
     Indication: PROPHYLAXIS AGAINST GRAFT VERSUS HOST DISEASE
     Dosage: UNK
     Route: 065
     Dates: start: 20121012, end: 20121022
  13. AMBISOME [Concomitant]
     Indication: SYSTEMIC MYCOSIS
     Dosage: UNK
     Route: 065
     Dates: start: 20121129, end: 20121210

REACTIONS (7)
  - Cardiac failure [Fatal]
  - Lung disorder [Not Recovered/Not Resolved]
  - Disseminated intravascular coagulation [Recovering/Resolving]
  - Neutropenia [Not Recovered/Not Resolved]
  - Sepsis [Not Recovered/Not Resolved]
  - Pneumocystis jirovecii pneumonia [Not Recovered/Not Resolved]
  - Gastritis [Recovering/Resolving]
